FAERS Safety Report 4864146-6 (Version None)
Quarter: 2005Q4

REPORT INFORMATION
  Report Type: 
  Country: None (occurrence: None)
  Receive Date: 20051222
  Receipt Date: 20051215
  Transmission Date: 20060501
  Serious: Yes (Death)
  Sender: FDA-Public Use
  Company Number: JP-JPN-A20053119

PATIENT

DRUGS (4)
  1. PAXIL [Suspect]
  2. DEPAS [Concomitant]
  3. AMOXAN [Concomitant]
  4. TOLEDOMIN [Concomitant]

REACTIONS (2)
  - DRUG EXPOSURE DURING PREGNANCY [None]
  - FOETAL GROWTH RETARDATION [None]
